FAERS Safety Report 6248087-8 (Version None)
Quarter: 2009Q2

REPORT INFORMATION
  Report Type: 
  Country: None (occurrence: None)
  Receive Date: 20090629
  Receipt Date: 20070504
  Transmission Date: 20091009
  Serious: Yes (Hospitalization, Other)
  Sender: FDA-Public Use
  Company Number: US-ASTRAZENECA-2006UW11288

PATIENT
  Age: 16204 Day
  Sex: Female
  Weight: 90.7 kg

DRUGS (5)
  1. SEROQUEL [Suspect]
     Indication: MENTAL DISORDER
     Dosage: 100-500 MG
     Route: 048
     Dates: start: 20010613
  2. ZYPREXA [Suspect]
  3. RISPERDAL [Concomitant]
  4. LITHIUM [Concomitant]
     Dosage: 300-600 MG
     Route: 048
     Dates: start: 20050114
  5. DALMANE [Concomitant]
     Route: 048
     Dates: start: 20050114

REACTIONS (6)
  - CHOLELITHIASIS [None]
  - DIABETES MELLITUS [None]
  - GLYCOSURIA [None]
  - HYPERGLYCAEMIA [None]
  - KETOACIDOSIS [None]
  - PANCREATITIS [None]
